FAERS Safety Report 4553675-0 (Version None)
Quarter: 2004Q4

REPORT INFORMATION
  Report Type: 
  Country: None (occurrence: None)
  Receive Date: 20041227
  Receipt Date: 20040804
  Transmission Date: 20050328
  Serious: Yes (Hospitalization)
  Sender: FDA-Public Use
  Company Number: US-JNJFOC-20040603540

PATIENT
  Age: 61 Year
  Sex: Male

DRUGS (3)
  1. REOPRO [Suspect]
     Indication: CORONARY ANGIOPLASTY
     Dosage: SEE IMAGE
     Route: 042
     Dates: start: 20040611, end: 20040611
  2. REOPRO [Suspect]
     Indication: CORONARY ANGIOPLASTY
     Dosage: SEE IMAGE
     Route: 042
     Dates: start: 20040611, end: 20040611
  3. REOPRO [Suspect]

REACTIONS (1)
  - THROMBOCYTOPENIA [None]
